FAERS Safety Report 7957595-0 (Version None)
Quarter: 2011Q4

REPORT INFORMATION
  Report Type: 
  Country: None (occurrence: None)
  Receive Date: 20111205
  Receipt Date: 20111129
  Transmission Date: 20120403
  Serious: Yes (Death)
  Sender: FDA-Public Use
  Company Number: US-CELGENEUS-163-21880-11102032

PATIENT
  Sex: Female

DRUGS (30)
  1. ATIVAN [Concomitant]
     Indication: INSOMNIA
  2. CALCIUM +D [Concomitant]
     Dosage: 500 MILLIGRAM
     Route: 048
  3. PERIDEX [Concomitant]
     Dosage: 15 MILLILITER
     Route: 048
  4. PRILOSEC [Concomitant]
     Dosage: 20 MILLIGRAM
     Route: 048
  5. BROMELAIN [Concomitant]
     Dosage: 1 PILL
     Route: 048
  6. ERYTHROMYCIN [Concomitant]
     Dosage: 5 MILLIGRAM
     Route: 065
  7. AREDIA [Concomitant]
     Dosage: 90 MILLIGRAM
     Route: 041
  8. ASPIRIN [Concomitant]
     Dosage: 325 MILLIGRAM
     Route: 048
  9. PREDNISONE TAB [Concomitant]
     Dosage: 10 MILLIGRAM
     Route: 048
  10. ONDANSETRON HYDROCHLORIDE [Concomitant]
     Dosage: 8 MILLIGRAM
     Route: 048
  11. OXYCODONE HCL [Concomitant]
     Dosage: 5 MILLIGRAM
     Route: 048
  12. ZITHROMAX [Concomitant]
     Dosage: 250 MILLIGRAM
     Route: 048
  13. REVLIMID [Suspect]
     Indication: MULTIPLE MYELOMA
     Dosage: 25 MILLIGRAM
     Route: 048
     Dates: start: 20100622, end: 20111003
  14. ATIVAN [Concomitant]
     Indication: ANXIETY
     Dosage: 1 MILLIGRAM
     Route: 048
  15. MORPHINE [Concomitant]
     Dosage: 15 MILLIGRAM
     Route: 065
  16. MORPHINE [Concomitant]
     Dosage: 15 MILLIGRAM
     Route: 065
  17. MORPHINE SULFATE [Concomitant]
     Route: 048
  18. LIDODERM [Concomitant]
     Dosage: 5 PERCENT
     Route: 065
  19. AMOXICILLIN [Concomitant]
     Dosage: 500 MILLIGRAM
     Route: 048
  20. LEVOTHYROXINE SODIUM [Concomitant]
     Dosage: 125 MICROGRAM
     Route: 048
  21. ACYCLOVIR [Concomitant]
     Dosage: 400 MILLIGRAM
     Route: 048
  22. FUROSEMIDE [Concomitant]
     Dosage: 20 MILLIGRAM
     Route: 048
  23. HYDROCODONE [Concomitant]
     Dosage: 2 TABLET
     Route: 048
  24. CYMBALTA [Concomitant]
     Dosage: 60 MILLIGRAM
     Route: 048
  25. DECADRON [Concomitant]
     Dosage: 40 MILLIGRAM
     Route: 048
  26. EPH-DHA COMPLEX [Concomitant]
     Dosage: 2 PILLS
     Route: 048
  27. PROCRIT [Concomitant]
     Route: 058
  28. AUGMENTIN [Concomitant]
     Dosage: 875-125MG
     Route: 048
  29. CEPHALEXIN [Concomitant]
     Dosage: 500 MILLIGRAM
     Route: 048
  30. KLOR-CON M [Concomitant]
     Dosage: 20
     Route: 048

REACTIONS (1)
  - PNEUMONIA [None]
